FAERS Safety Report 8508226-2 (Version None)
Quarter: 2012Q2

REPORT INFORMATION
  Report Type: 
  Country: None (occurrence: None)
  Receive Date: 20120405
  Receipt Date: 20090407
  Transmission Date: 20120825
  Serious: Yes (Other)
  Sender: FDA-Public Use
  Company Number: PHEH2009US03511

PATIENT
  Sex: Female

DRUGS (1)
  1. RECLAST [Suspect]
     Dates: start: 20080801, end: 20080801

REACTIONS (5)
  - GASTRIC DISORDER [None]
  - GAIT DISTURBANCE [None]
  - OSTEOARTHRITIS [None]
  - HYPOAESTHESIA [None]
  - MYALGIA [None]
